FAERS Safety Report 25684902 (Version 1)
Quarter: 2025Q3

REPORT INFORMATION
  Report Type: Spontaneous
  Country: US (occurrence: US)
  Receive Date: 20250815
  Receipt Date: 20250815
  Transmission Date: 20251020
  Serious: Yes (Hospitalization)
  Sender: PRIMUS PHARMACEUTICALS
  Company Number: US-PRIMUS-2025-US-037026

PATIENT
  Age: 80 Year
  Sex: Male

DRUGS (1)
  1. SERNIVO [Suspect]
     Active Substance: BETAMETHASONE DIPROPIONATE
     Indication: Seborrhoeic dermatitis
     Route: 061
     Dates: start: 20250117

REACTIONS (2)
  - COVID-19 [Unknown]
  - Off label use [Not Recovered/Not Resolved]

NARRATIVE: CASE EVENT DATE: 20250117
